FAERS Safety Report 8213258-8 (Version None)
Quarter: 2012Q1

REPORT INFORMATION
  Report Type: 
  Country: None (occurrence: None)
  Receive Date: 20120315
  Receipt Date: 20120305
  Transmission Date: 20120608
  Serious: Yes (Other)
  Sender: FDA-Public Use
  Company Number: TH-ABBOTT-12P-155-0909352-00

PATIENT
  Age: 40 Year
  Sex: Female

DRUGS (7)
  1. KALETRA [Suspect]
     Indication: HIV INFECTION
     Route: 048
     Dates: start: 20110616
  2. REYATAZ [Concomitant]
     Indication: HIV INFECTION
     Route: 048
     Dates: start: 20110404, end: 20110418
  3. INTELENCE [Concomitant]
     Indication: HIV INFECTION
     Route: 048
     Dates: start: 20110419, end: 20110614
  4. EPIVIR [Concomitant]
     Indication: HIV INFECTION
     Route: 048
     Dates: start: 20110322
  5. RETROVIR [Concomitant]
     Indication: HIV INFECTION
     Route: 048
     Dates: start: 20110616
  6. RITONAVIR [Suspect]
     Indication: HIV INFECTION
     Route: 048
     Dates: start: 20110404, end: 20110418
  7. REYATAZ [Concomitant]
     Route: 048
     Dates: start: 20110419, end: 20110616

REACTIONS (2)
  - PRE-ECLAMPSIA [None]
  - PREMATURE RUPTURE OF MEMBRANES [None]
